FAERS Safety Report 8832951 (Version 2)
Quarter: 2012Q4

REPORT INFORMATION
  Report Type: 
  Country: US (occurrence: US)
  Receive Date: 20121010
  Receipt Date: 20121127
  Transmission Date: 20130627
  Serious: Yes (Hospitalization)
  Sender: FDA-Public Use
  Company Number: PHHO2012US004079

PATIENT
  Age: 68 Year
  Sex: Male
  Weight: 95.69 kg

DRUGS (10)
  1. HEPARIN [Suspect]
     Indication: DEEP VEIN THROMBOSIS
     Dosage: 15 unit/kg/hr
     Dates: start: 20120209, end: 20120210
  2. MYCOPHENOLATE MOFETIL [Suspect]
     Indication: RENAL TRANSPLANT
     Dosage: 500 mg QD, 1000 mg  PRN
     Route: 048
     Dates: start: 20120205, end: 20120212
  3. PROGRAF [Concomitant]
     Indication: RENAL TRANSPLANT
     Dosage: 8 mg, BID
     Route: 048
     Dates: start: 20120207, end: 20120315
  4. PROGRAF [Concomitant]
     Dosage: 7 mg, BID
     Route: 048
     Dates: start: 20120316
  5. PROGRAF [Concomitant]
     Dosage: 6 mg, BID
     Route: 048
     Dates: start: 20120317, end: 20120318
  6. PROGRAF [Concomitant]
     Dosage: 5 mg, BID
     Route: 048
     Dates: start: 20120318
  7. BACTRIM DS [Concomitant]
     Dosage: UNK
  8. VALCYTE [Concomitant]
     Dosage: 450 mg every other day
     Route: 048
     Dates: start: 20000504
  9. PREDNISONE [Concomitant]
     Indication: IMMUNOSUPPRESSION
     Dosage: 20 mg, QD
     Route: 048
     Dates: start: 20120208
  10. WARFARIN [Concomitant]
     Indication: DEEP VEIN THROMBOSIS
     Dosage: 5 mg, QD
     Dates: start: 20120209, end: 20120210

REACTIONS (1)
  - Renal failure acute [Recovered/Resolved]
